FAERS Safety Report 25527978 (Version 2)
Quarter: 2025Q3

REPORT INFORMATION
  Report Type: Spontaneous
  Country: US (occurrence: US)
  Receive Date: 20250708
  Receipt Date: 20250924
  Transmission Date: 20251020
  Serious: No
  Sender: MADRIGAL PHARMACEUTICALS
  Company Number: US-MADRIGAL PHARMACEUTICALS, INC-2025REZ4281

PATIENT

DRUGS (10)
  1. REZDIFFRA [Suspect]
     Active Substance: RESMETIROM
     Indication: Metabolic dysfunction-associated steatohepatitis
     Route: 048
     Dates: start: 20250411, end: 20250412
  2. METFORMIN [Concomitant]
     Active Substance: METFORMIN HYDROCHLORIDE
     Dosage: 1000 MILLIGRAM, BID
  3. VITAMIN D3 [Concomitant]
     Active Substance: CHOLECALCIFEROL
     Route: 048
  4. MOTRIN [Concomitant]
     Active Substance: IBUPROFEN
     Dosage: 200 MILLIGRAM, Q6H, AS NEEDED
  5. COZAAR [Concomitant]
     Active Substance: LOSARTAN POTASSIUM
     Dosage: 50 MILLIGRAM, QD
  6. DIETARY SUPPLEMENT\HERBALS\MILK THISTLE [Concomitant]
     Active Substance: MILK THISTLE
     Dosage: 100 MILLIGRAM, QD
     Route: 048
  7. LECITHIN [Concomitant]
     Active Substance: LECITHIN
     Dosage: ONE CAPSULE, QD
  8. HERBALS\TURMERIC [Concomitant]
     Active Substance: HERBALS\TURMERIC
     Route: 048
  9. ULORIC [Concomitant]
     Active Substance: FEBUXOSTAT
     Dosage: 40 MILLIGRAM, QD
  10. VITAMIN E [Concomitant]
     Active Substance: .ALPHA.-TOCOPHEROL
     Dosage: 1000 UNIT, QD

REACTIONS (1)
  - Urticaria [Recovered/Resolved]

NARRATIVE: CASE EVENT DATE: 20250412
